FAERS Safety Report 6187400-7 (Version None)
Quarter: 2009Q2

REPORT INFORMATION
  Report Type: 
  Country: None (occurrence: None)
  Receive Date: 20090512
  Receipt Date: 20090505
  Transmission Date: 20091009
  Serious: Yes (Other)
  Sender: FDA-Public Use
  Company Number: B0573498A

PATIENT
  Sex: Male

DRUGS (1)
  1. ELONTRIL [Suspect]
     Indication: DRUG USE FOR UNKNOWN INDICATION
     Dosage: 150MG PER DAY
     Route: 048
     Dates: start: 20090325, end: 20090418

REACTIONS (3)
  - CIRCULATORY COLLAPSE [None]
  - HYPOAESTHESIA [None]
  - VERTIGO [None]
